APPROVED DRUG PRODUCT: MYCELEX
Active Ingredient: CLOTRIMAZOLE
Strength: 10MG **Federal Register determination that product was not discontinued or withdrawn for safety or effectiveness reasons**
Dosage Form/Route: TROCHE/LOZENGE;ORAL
Application: N018713 | Product #001
Applicant: BAYER HEALTHCARE PHARMACEUTICALS INC
Approved: Jun 17, 1983 | RLD: Yes | RS: No | Type: DISCN